APPROVED DRUG PRODUCT: ONDANSETRON HYDROCHLORIDE PRESERVATIVE FREE
Active Ingredient: ONDANSETRON HYDROCHLORIDE
Strength: EQ 2MG BASE/ML
Dosage Form/Route: INJECTABLE;INJECTION
Application: A078244 | Product #001
Applicant: ONESOURCE SPECIALTY PTE LTD
Approved: Apr 23, 2008 | RLD: No | RS: No | Type: DISCN